FAERS Safety Report 12271706 (Version 1)
Quarter: 2016Q2

REPORT INFORMATION
  Report Type: Spontaneous
  Country: US (occurrence: None)
  Receive Date: 20160414
  Receipt Date: 20160414
  Transmission Date: 20160815
  Serious: Yes (Hospitalization)
  Sender: FDA-Public Use
  Company Number: None

PATIENT
  Age: 34 Year
  Sex: Female
  Weight: 83 kg

DRUGS (2)
  1. DOXORUBICIN HYDROCHLORIDE. [Suspect]
     Active Substance: DOXORUBICIN HYDROCHLORIDE
     Dates: end: 20160324
  2. CYCLOPHOSPHAMIDE. [Suspect]
     Active Substance: CYCLOPHOSPHAMIDE
     Dates: end: 20160324

REACTIONS (6)
  - Jugular vein thrombosis [None]
  - Pulmonary embolism [None]
  - Local swelling [None]
  - Neck pain [None]
  - Subclavian vein thrombosis [None]
  - Infection [None]

NARRATIVE: CASE EVENT DATE: 20160404
